FAERS Safety Report 4840610-0 (Version None)
Quarter: 2005Q4

REPORT INFORMATION
  Report Type: 
  Country: None (occurrence: None)
  Receive Date: 20051129
  Receipt Date: 20051129
  Transmission Date: 20060501
  Serious: Yes (Hospitalization, Other)
  Sender: FDA-Public Use
  Company Number: None

PATIENT
  Sex: Male
  Weight: 54.75 kg

DRUGS (6)
  1. DAUNORUBICIN HCL [Suspect]
     Indication: ACUTE LYMPHOCYTIC LEUKAEMIA
     Dosage: SEE IMAGE
     Dates: start: 20050921, end: 20051005
  2. DAUNORUBICIN HCL [Suspect]
     Indication: ACUTE LYMPHOCYTIC LEUKAEMIA
     Dosage: SEE IMAGE
     Dates: start: 20050921
  3. DEXAMETHASONE [Suspect]
     Dosage: SEE IMAGE
     Dates: start: 20510921, end: 20050401
  4. METHOTREXATE [Suspect]
     Dosage: SEE IMAGE
     Dates: start: 20050928, end: 20050928
  5. PEG-L-ASPARAGINASE K-H) [Suspect]
     Dosage: SEE IMAGE
     Dates: start: 20050926, end: 20050926
  6. VINCRISTINE SULFATE [Suspect]
     Dosage: SEE IMAGE
     Dates: start: 20050921, end: 20051005

REACTIONS (3)
  - HEPATIC STEATOSIS [None]
  - JAUNDICE CHOLESTATIC [None]
  - LIVER DISORDER [None]
